FAERS Safety Report 25102016 (Version 1)
Quarter: 2025Q1

REPORT INFORMATION
  Report Type: Spontaneous
  Country: CN (occurrence: CN)
  Receive Date: 20250320
  Receipt Date: 20250320
  Transmission Date: 20250408
  Serious: Yes (Other)
  Sender: ELI LILLY AND COMPANY
  Company Number: CN-ELI_LILLY_AND_COMPANY-CN202503012090

PATIENT
  Age: 64 Year
  Sex: Female

DRUGS (4)
  1. GEMCITABINE HYDROCHLORIDE [Suspect]
     Active Substance: GEMCITABINE HYDROCHLORIDE
     Indication: Lung adenocarcinoma
     Route: 037
     Dates: start: 202308, end: 202310
  2. GEMCITABINE HYDROCHLORIDE [Suspect]
     Active Substance: GEMCITABINE HYDROCHLORIDE
     Indication: Metastases to meninges
  3. TRAMETINIB [Concomitant]
     Active Substance: TRAMETINIB
     Indication: Lung adenocarcinoma
     Dosage: 2 MG, DAILY
     Route: 048
     Dates: start: 20221116, end: 202310
  4. TRAMETINIB [Concomitant]
     Active Substance: TRAMETINIB
     Indication: Metastases to meninges

REACTIONS (3)
  - General physical health deterioration [Unknown]
  - Respiratory tract infection [Unknown]
  - Bacteraemia [Unknown]

NARRATIVE: CASE EVENT DATE: 20231001
